FAERS Safety Report 4351883-5 (Version None)
Quarter: 2004Q2

REPORT INFORMATION
  Report Type: 
  Country: None (occurrence: None)
  Receive Date: 20040503
  Receipt Date: 20040420
  Transmission Date: 20050107
  Serious: Yes (Hospitalization)
  Sender: FDA-Public Use
  Company Number: PHBS2004US05584

PATIENT
  Age: 14 Month
  Sex: Male

DRUGS (1)
  1. CARBAMAZEPINE [Suspect]
     Route: 065

REACTIONS (12)
  - ALANINE AMINOTRANSFERASE INCREASED [None]
  - ANTICONVULSANT DRUG LEVEL INCREASED [None]
  - ASPARTATE AMINOTRANSFERASE INCREASED [None]
  - ATAXIA [None]
  - COMA [None]
  - CONVULSION [None]
  - DRUG TOXICITY [None]
  - HYPERSOMNIA [None]
  - MOVEMENT DISORDER [None]
  - MUNCHAUSEN'S SYNDROME [None]
  - MYOCLONUS [None]
  - NYSTAGMUS [None]
